FAERS Safety Report 10775786 (Version 2)
Quarter: 2015Q1

REPORT INFORMATION
  Report Type: Report from Study
  Country: JP (occurrence: None)
  Receive Date: 20150205
  Receipt Date: 20150213
  Transmission Date: 20150721
  Serious: Yes (Hospitalization, Other)
  Sender: FDA-Public Use
  Company Number: 2015-000057

PATIENT
  Age: 82 Year
  Sex: Female

DRUGS (16)
  1. ANTEBATE (BETAMETHASONE BUTYRATE PROPIONATE) [Concomitant]
  2. MUCODYNE (CARBOCISTEINE) [Concomitant]
     Active Substance: CARBOCYSTEINE
  3. GASMOTIN (MOSAPRIDE CITRATE) [Concomitant]
     Active Substance: MOSAPRIDE CITRATE
  4. ZETIA [Concomitant]
     Active Substance: EZETIMIBE
  5. GASTER D (FAMOTIDINE) [Concomitant]
  6. LIPITOR [Concomitant]
     Active Substance: ATORVASTATIN CALCIUM
  7. KARY UNI (PIRENOXINE) [Concomitant]
  8. HYALEIN (HYALURONATE SODIUM) [Concomitant]
  9. CALCIUM LACTATE (CALCIUM LACTATE) [Concomitant]
     Active Substance: CALCIUM LACTATE
  10. CINAL (ASCORBIC ACID, CALCIUM PANTOTHENATE) [Concomitant]
  11. CEROCRAL (FENPRODIL TARTRATE) [Concomitant]
  12. BUP-4 (PROPIVERINE HYDROCHLORIDE) [Concomitant]
  13. HIRUDOID (HEPARINOID) [Concomitant]
  14. ACTONEL [Suspect]
     Active Substance: RISEDRONATE SODIUM
     Indication: OSTEOPOROSIS
     Route: 048
     Dates: start: 20140925
  15. ADOVAIR (FLUTICASONE PROPIONATE, SALMETEROL XINAFOATE) [Concomitant]
  16. AMLODIPINE [Concomitant]
     Active Substance: AMLODIPINE BESYLATE

REACTIONS (1)
  - Sudden hearing loss [None]

NARRATIVE: CASE EVENT DATE: 20150111
